FAERS Safety Report 7015916-X (Version None)
Quarter: 2010Q3

REPORT INFORMATION
  Report Type: 
  Country: None (occurrence: None)
  Receive Date: 20100927
  Receipt Date: 20100720
  Transmission Date: 20110219
  Serious: No
  Sender: FDA-Public Use
  Company Number: US-ASTRAZENECA-2010SE11301

PATIENT
  Sex: Female

DRUGS (1)
  1. ARIMIDEX [Suspect]
     Route: 048

REACTIONS (10)
  - ABDOMINAL PAIN UPPER [None]
  - ARTHRALGIA [None]
  - ASTHENIA [None]
  - BACK PAIN [None]
  - BONE PAIN [None]
  - CHEST PAIN [None]
  - DYSPNOEA [None]
  - LIMB DISCOMFORT [None]
  - MUSCULOSKELETAL DISCOMFORT [None]
  - SYNCOPE [None]
